FAERS Safety Report 7902883-7 (Version None)
Quarter: 2011Q4

REPORT INFORMATION
  Report Type: 
  Country: None (occurrence: None)
  Receive Date: 20111109
  Receipt Date: 20111103
  Transmission Date: 20120403
  Serious: Yes (Other)
  Sender: FDA-Public Use
  Company Number: SE-JNJFOC-20110704468

PATIENT
  Sex: Male
  Weight: 80 kg

DRUGS (4)
  1. STELARA [Suspect]
     Indication: ARTHRITIS
     Route: 058
     Dates: start: 20110617, end: 20110617
  2. ENBREL [Suspect]
     Indication: PRODUCT USED FOR UNKNOWN INDICATION
     Dates: end: 20110603
  3. STELARA [Suspect]
     Indication: PSORIASIS
     Route: 058
     Dates: start: 20110617, end: 20110617
  4. ENBREL [Suspect]
     Dates: start: 20070901

REACTIONS (2)
  - WEIGHT DECREASED [None]
  - GUILLAIN-BARRE SYNDROME [None]
